FAERS Safety Report 21151497 (Version 1)
Quarter: 2022Q3

REPORT INFORMATION
  Report Type: Report from Study
  Country: US (occurrence: US)
  Receive Date: 20220730
  Receipt Date: 20220730
  Transmission Date: 20221027
  Serious: Yes (Hospitalization)
  Sender: FDA-Public Use
  Company Number: US-NOVARTISPH-NVSC2022US171462

PATIENT
  Sex: Female

DRUGS (1)
  1. METHOTREXATE [Suspect]
     Active Substance: METHOTREXATE
     Indication: Product used for unknown indication
     Dosage: UNK
     Route: 065

REACTIONS (19)
  - Cardiac disorder [Unknown]
  - Lung disorder [Unknown]
  - Renal disorder [Unknown]
  - Multi-organ disorder [Unknown]
  - Visual impairment [Unknown]
  - Neuropathy peripheral [Unknown]
  - Musculoskeletal discomfort [Unknown]
  - Muscle discomfort [Unknown]
  - Back disorder [Unknown]
  - Limb injury [Unknown]
  - Alopecia [Unknown]
  - Pericarditis [Unknown]
  - Colitis [Unknown]
  - Nerve injury [Unknown]
  - Bone disorder [Unknown]
  - Feeling abnormal [Unknown]
  - Large intestine infection [Unknown]
  - Lupus nephritis [Unknown]
  - Pain [Unknown]
